FAERS Safety Report 14928566 (Version 1)
Quarter: 2018Q2

REPORT INFORMATION
  Report Type: Spontaneous
  Country: US (occurrence: US)
  Receive Date: 20180504
  Receipt Date: 20180504
  Transmission Date: 20180711
  Serious: Yes (Hospitalization)
  Sender: FDA-Public Use
  Company Number: None

PATIENT
  Age: 18 Year
  Sex: Male
  Weight: 134 kg

DRUGS (6)
  1. ACETAMINOPHEN. [Concomitant]
     Active Substance: ACETAMINOPHEN
     Dates: start: 20180410, end: 20180410
  2. ALBUTEROL. [Concomitant]
     Active Substance: ALBUTEROL
     Dates: start: 20180412, end: 20180412
  3. KYMRIAH [Suspect]
     Active Substance: TISAGENLECLEUCEL
     Indication: B-CELL SMALL LYMPHOCYTIC LYMPHOMA RECURRENT
     Dates: start: 20180410, end: 20180410
  4. PENTAMIDINE INHALED [Concomitant]
     Dates: start: 20180412, end: 20180412
  5. LEVOTHYROXINE. [Concomitant]
     Active Substance: LEVOTHYROXINE
     Dates: start: 20180410
  6. DIPHENHYDRAMINE. [Concomitant]
     Active Substance: DIPHENHYDRAMINE
     Dates: start: 20180410, end: 20180410

REACTIONS (3)
  - Hypotension [None]
  - Metapneumovirus infection [None]
  - Clostridium difficile colitis [None]

NARRATIVE: CASE EVENT DATE: 20180418
